FAERS Safety Report 6168100-6 (Version None)
Quarter: 2009Q2

REPORT INFORMATION
  Report Type: 
  Country: None (occurrence: None)
  Receive Date: 20090427
  Receipt Date: 20090327
  Transmission Date: 20091009
  Serious: No
  Sender: FDA-Public Use
  Company Number: US-BAYER-200916908NA

PATIENT
  Age: 22 Year
  Sex: Female
  Weight: 86 kg

DRUGS (2)
  1. MIRENA [Suspect]
     Indication: CONTRACEPTION
     Route: 015
     Dates: start: 20090204, end: 20090212
  2. MIRENA [Suspect]
     Route: 015
     Dates: start: 20090305, end: 20090314

REACTIONS (2)
  - COMPLICATION OF DEVICE INSERTION [None]
  - INTRA-UTERINE CONTRACEPTIVE DEVICE EXPELLED [None]
